FAERS Safety Report 23145112 (Version 1)
Quarter: 2023Q4

REPORT INFORMATION
  Report Type: Spontaneous
  Country: US (occurrence: US)
  Receive Date: 20231103
  Receipt Date: 20231103
  Transmission Date: 20240109
  Serious: Yes (Other)
  Sender: FDA-Public Use
  Company Number: US-TAKEDA-2023TUS103442

PATIENT
  Sex: Female
  Weight: 59 kg

DRUGS (4)
  1. ADDERALL XR [Suspect]
     Active Substance: AMPHETAMINE ASPARTATE\AMPHETAMINE SULFATE\DEXTROAMPHETAMINE SACCHARATE\DEXTROAMPHETAMINE SULFATE
     Indication: Attention deficit hyperactivity disorder
     Dosage: 20 MILLIGRAM, QD
     Route: 065
  2. VYVANSE [Suspect]
     Active Substance: LISDEXAMFETAMINE DIMESYLATE
     Indication: Attention deficit hyperactivity disorder
     Dosage: 30 MILLIGRAM, QD
     Route: 065
  3. ALEVE [Concomitant]
     Active Substance: NAPROXEN SODIUM
     Indication: Arthritis
     Dosage: UNK
     Route: 065
  4. LORAZEPAM [Concomitant]
     Active Substance: LORAZEPAM
     Indication: Sleep disorder
     Dosage: UNK
     Route: 065

REACTIONS (13)
  - Bunion operation [Not Recovered/Not Resolved]
  - Arthritis [Not Recovered/Not Resolved]
  - Mental disorder [Unknown]
  - Food craving [Unknown]
  - Nerve injury [Not Recovered/Not Resolved]
  - Hypoaesthesia [Unknown]
  - Finger deformity [Not Recovered/Not Resolved]
  - Skin discolouration [Unknown]
  - Poor peripheral circulation [Not Recovered/Not Resolved]
  - Disturbance in attention [Unknown]
  - Paraesthesia [Unknown]
  - Headache [Unknown]
  - Intentional product use issue [Unknown]
